FAERS Safety Report 7835297-9 (Version None)
Quarter: 2011Q4

REPORT INFORMATION
  Report Type: 
  Country: None (occurrence: None)
  Receive Date: 20111024
  Receipt Date: 20111016
  Transmission Date: 20120403
  Serious: Yes (Other)
  Sender: FDA-Public Use
  Company Number: US-SANOFI-AVENTIS-2011SA069237

PATIENT
  Sex: Male

DRUGS (1)
  1. LANTUS [Suspect]
     Dosage: DOSE:12 UNIT(S)
     Route: 058

REACTIONS (3)
  - BLOOD GLUCOSE DECREASED [None]
  - SENILE DEMENTIA [None]
  - GENERAL PHYSICAL HEALTH DETERIORATION [None]
